FAERS Safety Report 6827295-9 (Version None)
Quarter: 2010Q3

REPORT INFORMATION
  Report Type: 
  Country: None (occurrence: None)
  Receive Date: 20100709
  Receipt Date: 20100704
  Transmission Date: 20110219
  Serious: Yes (Hospitalization, Other)
  Sender: FDA-Public Use
  Company Number: ES-CEPHALON-2010003264

PATIENT
  Age: 76 Year
  Sex: Female

DRUGS (7)
  1. ACTIQ [Suspect]
     Route: 002
     Dates: start: 20100323, end: 20100512
  2. CARVEDILOL [Suspect]
     Indication: ATRIAL FIBRILLATION
     Route: 048
     Dates: start: 20100512
  3. FENTANYL CITRATE [Concomitant]
     Dates: start: 20090501, end: 20100512
  4. PREGABALIN [Concomitant]
     Dates: end: 20100512
  5. ATORVASTATIN [Concomitant]
  6. IRBESARTAN [Concomitant]
  7. MINITRAN [Concomitant]

REACTIONS (4)
  - ASTHENIA [None]
  - BRADYCARDIA [None]
  - EXTRASYSTOLES [None]
  - SOMNOLENCE [None]
